FAERS Safety Report 23471643 (Version 1)
Quarter: 2024Q1

REPORT INFORMATION
  Report Type: Spontaneous
  Country: BR (occurrence: BR)
  Receive Date: 20240202
  Receipt Date: 20240202
  Transmission Date: 20240410
  Serious: Yes (Other)
  Sender: FDA-Public Use
  Company Number: BR-002147023-NVSC2024BR006562

PATIENT
  Sex: Female

DRUGS (1)
  1. TRAVATAN [Suspect]
     Active Substance: TRAVOPROST
     Indication: Product used for unknown indication
     Dosage: 5 ML
     Route: 065

REACTIONS (5)
  - Diabetes mellitus [Not Recovered/Not Resolved]
  - Parkinson^s disease [Not Recovered/Not Resolved]
  - Eye disorder [Unknown]
  - Hypertension [Not Recovered/Not Resolved]
  - Expired product administered [Unknown]
